FAERS Safety Report 8339802-8 (Version None)
Quarter: 2012Q2

REPORT INFORMATION
  Report Type: 
  Country: None (occurrence: None)
  Receive Date: 20120507
  Receipt Date: 20120427
  Transmission Date: 20120825
  Serious: Yes (Other)
  Sender: FDA-Public Use
  Company Number: JP-VERTEX PHARMACEUTICALS INC.-AE-2012-001521

PATIENT
  Age: 55 Year
  Sex: Male

DRUGS (15)
  1. PEG-INTRON [Concomitant]
     Indication: HEPATITIS C
     Route: 058
     Dates: start: 20120111, end: 20120118
  2. XYZAL [Concomitant]
     Route: 048
     Dates: start: 20120120
  3. URSO 250 [Concomitant]
     Route: 048
  4. DEPAS [Concomitant]
     Route: 048
  5. ALLOPURINOL [Concomitant]
     Route: 048
     Dates: start: 20120127
  6. JANUVIA [Concomitant]
     Route: 048
  7. SELBEX [Concomitant]
     Route: 048
     Dates: start: 20120120
  8. XYZAL [Concomitant]
     Route: 048
     Dates: start: 20120120
  9. LOSARTAN POTASSIUM [Concomitant]
     Route: 048
  10. LIVALO [Concomitant]
     Route: 048
  11. KETOBUN [Concomitant]
     Route: 048
  12. PEG-INTRON [Concomitant]
     Route: 058
     Dates: start: 20120125, end: 20120125
  13. AMOBAN [Concomitant]
     Route: 048
  14. TELAVIC (TELAPREVIR) [Suspect]
     Indication: HEPATITIS C
     Route: 048
     Dates: start: 20120111, end: 20120125
  15. REBETOL [Concomitant]
     Indication: HEPATITIS C
     Route: 048
     Dates: start: 20120111, end: 20120125

REACTIONS (4)
  - LEUKOPENIA [None]
  - NEUTROPENIA [None]
  - THROMBOCYTOPENIA [None]
  - PYREXIA [None]
